FAERS Safety Report 4972912-1 (Version None)
Quarter: 2006Q2

REPORT INFORMATION
  Report Type: 
  Country: None (occurrence: None)
  Receive Date: 20060414
  Receipt Date: 20060406
  Transmission Date: 20061013
  Serious: Yes (Hospitalization, Other)
  Sender: FDA-Public Use
  Company Number: US-JNJFOC-20060401565

PATIENT
  Sex: Male
  Weight: 95.26 kg

DRUGS (5)
  1. REMICADE [Suspect]
     Indication: RHEUMATOID ARTHRITIS
     Route: 042
  2. AZULFADINE [Concomitant]
     Dosage: 6  TABS DAILY
  3. PREDNISONE [Concomitant]
  4. DIOVAN [Concomitant]
  5. WELLBUTRIN [Concomitant]

REACTIONS (3)
  - DEPRESSION [None]
  - LIP NEOPLASM MALIGNANT STAGE UNSPECIFIED [None]
  - NEOPLASM MALIGNANT [None]
